FAERS Safety Report 21202112 (Version 5)
Quarter: 2024Q3

REPORT INFORMATION
  Report Type: Spontaneous
  Country: US (occurrence: US)
  Receive Date: 20220811
  Receipt Date: 20240812
  Transmission Date: 20241017
  Serious: No
  Sender: ANI
  Company Number: US-ANIPHARMA-2022-US-016098

PATIENT
  Sex: Male
  Weight: 71.67 kg

DRUGS (1)
  1. CORTICOTROPIN [Suspect]
     Active Substance: CORTICOTROPIN
     Indication: Pulmonary sarcoidosis
     Dosage: 0.5 ML (40 UNITS) TWICE WEEKLY / INJECT 1ML (80 UNITS) INTO THE MUSCLES OF THE SHOULDER, THIGH OR BU
     Route: 058
     Dates: start: 20220602

REACTIONS (9)
  - Choking sensation [Unknown]
  - Blood glucose decreased [Unknown]
  - Injection site pain [Unknown]
  - Injection site warmth [Unknown]
  - Condition aggravated [Unknown]
  - Cough [Unknown]
  - Dyspnoea [Unknown]
  - Dizziness [Unknown]
  - Incorrect dosage administered [Unknown]
